FAERS Safety Report 7900461-7 (Version None)
Quarter: 2011Q4

REPORT INFORMATION
  Report Type: 
  Country: None (occurrence: None)
  Receive Date: 20111108
  Receipt Date: 20111031
  Transmission Date: 20120403
  Serious: Yes (Hospitalization)
  Sender: FDA-Public Use
  Company Number: FR-JNJFOC-20110700230

PATIENT
  Age: 94 Year
  Sex: Female

DRUGS (7)
  1. ACETAMINOPHEN [Concomitant]
     Route: 065
  2. LASIX [Concomitant]
     Route: 065
  3. LEVOFLOXACIN [Suspect]
     Indication: RENAL ABSCESS
     Route: 048
     Dates: start: 20110503, end: 20110527
  4. DOMPERIDONE [Concomitant]
     Route: 065
  5. BISOPROLOL [Concomitant]
     Route: 065
  6. CEFTRIAXONE [Suspect]
     Indication: RENAL ABSCESS
     Route: 058
     Dates: start: 20110419, end: 20110519
  7. LOVENOX [Concomitant]
     Route: 065

REACTIONS (4)
  - PYREXIA [None]
  - LYMPHOPENIA [None]
  - NEUTROPENIA [None]
  - AGRANULOCYTOSIS [None]
